FAERS Safety Report 9435417 (Version 1)
Quarter: 2013Q3

REPORT INFORMATION
  Report Type: Spontaneous
  Country: FR (occurrence: FR)
  Receive Date: 20130801
  Receipt Date: 20130801
  Transmission Date: 20140515
  Serious: Yes (Hospitalization)
  Sender: FDA-Public Use
  Company Number: FR-GLAXOSMITHKLINE-B0909995A

PATIENT
  Age: 71 Year
  Sex: Female

DRUGS (2)
  1. DEROXAT [Suspect]
     Indication: PRODUCT USED FOR UNKNOWN INDICATION
     Dosage: 1UNIT PER DAY
     Route: 048
     Dates: start: 201305, end: 201306
  2. OXYGEN [Concomitant]
     Indication: CHRONIC RESPIRATORY FAILURE
     Dosage: 2LM CONTINUOUS
     Route: 065

REACTIONS (3)
  - Hyponatraemia [Recovered/Resolved]
  - Disorientation [Unknown]
  - Confusional state [Unknown]
